FAERS Safety Report 21375587 (Version 1)
Quarter: 2022Q3

REPORT INFORMATION
  Report Type: Spontaneous
  Country: US (occurrence: None)
  Receive Date: 20220923
  Receipt Date: 20220923
  Transmission Date: 20221026
  Serious: No
  Sender: FDA-Public Use
  Company Number: None

PATIENT
  Age: 61 Year
  Sex: Male
  Weight: 91.5 kg

DRUGS (1)
  1. KIMYRSA [Suspect]
     Active Substance: ORITAVANCIN DIPHOSPHATE
     Indication: Limb injury
     Dosage: FREQUENCY : ONCE;?
     Route: 042

REACTIONS (1)
  - Chills [None]

NARRATIVE: CASE EVENT DATE: 20220830
